FAERS Safety Report 25147166 (Version 1)
Quarter: 2025Q2

REPORT INFORMATION
  Report Type: Spontaneous
  Country: DK (occurrence: DK)
  Receive Date: 20250401
  Receipt Date: 20250401
  Transmission Date: 20250717
  Serious: Yes (Hospitalization)
  Sender: MERCK SHARP AND DOHME
  Company Number: DK-009507513-2270129

PATIENT
  Age: 60 Decade
  Sex: Female

DRUGS (3)
  1. PEMBROLIZUMAB [Suspect]
     Active Substance: PEMBROLIZUMAB
     Indication: Triple negative breast cancer
     Route: 065
  2. CARBOPLATIN [Concomitant]
     Active Substance: CARBOPLATIN
     Indication: Triple negative breast cancer
     Route: 065
  3. PACLITAXEL [Concomitant]
     Active Substance: PACLITAXEL
     Indication: Triple negative breast cancer
     Route: 065

REACTIONS (2)
  - Acquired amegakaryocytic thrombocytopenia [Recovering/Resolving]
  - Drug eruption [Unknown]
